FAERS Safety Report 25960418 (Version 1)
Quarter: 2025Q4

REPORT INFORMATION
  Report Type: Report from Study
  Country: US (occurrence: US)
  Receive Date: 20251027
  Receipt Date: 20251027
  Transmission Date: 20260118
  Serious: Yes (Other)
  Sender: ABBVIE
  Company Number: US-ABBVIE-6515015

PATIENT
  Age: 41 Year
  Sex: Female

DRUGS (1)
  1. ORILISSA [Suspect]
     Active Substance: ELAGOLIX SODIUM
     Indication: Product used for unknown indication
     Route: 048
     Dates: start: 20220312

REACTIONS (3)
  - Colectomy [Recovering/Resolving]
  - Oophorectomy [Recovering/Resolving]
  - Hysterectomy [Recovering/Resolving]

NARRATIVE: CASE EVENT DATE: 20250509
